FAERS Safety Report 19102016 (Version 2)
Quarter: 2021Q3

REPORT INFORMATION
  Report Type: Spontaneous
  Country: CA (occurrence: CA)
  Receive Date: 20210407
  Receipt Date: 20210804
  Transmission Date: 20211014
  Serious: Yes (Hospitalization, Other)
  Sender: FDA-Public Use
  Company Number: CA-TEVA-2021-CA-1897593

PATIENT
  Age: 70 Year
  Sex: Female

DRUGS (51)
  1. LEVODOPA?CARBIDOPA [Suspect]
     Active Substance: CARBIDOPA\LEVODOPA
     Route: 065
  2. PRAMIPEXOLE. [Suspect]
     Active Substance: PRAMIPEXOLE
     Dosage: 4.5 MILLIGRAM DAILY;
     Route: 065
  3. PRAMIPEXOLE. [Suspect]
     Active Substance: PRAMIPEXOLE
     Route: 065
  4. QUETIAPINE FUMARATE. [Suspect]
     Active Substance: QUETIAPINE FUMARATE
     Indication: PRODUCT USED FOR UNKNOWN INDICATION
     Dosage: 12.5 MILLIGRAM DAILY;
     Route: 048
  5. AMANTADINE HYDROCHLORIDE. [Suspect]
     Active Substance: AMANTADINE HYDROCHLORIDE
     Dosage: 300 MILLIGRAM DAILY;
     Route: 065
  6. NABILONE [Suspect]
     Active Substance: NABILONE
     Route: 065
  7. QUETIAPINE FUMARATE. [Suspect]
     Active Substance: QUETIAPINE FUMARATE
     Indication: PSYCHOTIC DISORDER
     Dosage: 12.5 MILLIGRAM DAILY;
     Route: 048
  8. AMANTADINE HYDROCHLORIDE. [Suspect]
     Active Substance: AMANTADINE HYDROCHLORIDE
     Dosage: 300 MILLIGRAM DAILY;
     Route: 065
  9. NABILONE [Suspect]
     Active Substance: NABILONE
     Route: 048
  10. ENTACAPONE. [Suspect]
     Active Substance: ENTACAPONE
     Indication: PSYCHOTIC DISORDER
     Dosage: 1000 MILLIGRAM DAILY;
     Route: 065
  11. ENTACAPONE. [Suspect]
     Active Substance: ENTACAPONE
     Dosage: 1000 MILLIGRAM DAILY;
     Route: 065
  12. ENTACAPONE. [Suspect]
     Active Substance: ENTACAPONE
     Dosage: 1000 MILLIGRAM DAILY;
     Route: 065
  13. LEVODOPA?CARBIDOPA [Suspect]
     Active Substance: CARBIDOPA\LEVODOPA
     Indication: PARKINSON^S DISEASE
     Route: 065
  14. LEVODOPA?CARBIDOPA [Suspect]
     Active Substance: CARBIDOPA\LEVODOPA
     Route: 065
  15. PRAMIPEXOLE. [Suspect]
     Active Substance: PRAMIPEXOLE
     Indication: PRODUCT USED FOR UNKNOWN INDICATION
     Dosage: 4.5 MILLIGRAM DAILY;
     Route: 065
  16. AMANTADINE HYDROCHLORIDE. [Suspect]
     Active Substance: AMANTADINE HYDROCHLORIDE
     Dosage: 300 MILLIGRAM DAILY;
     Route: 065
  17. CLOZAPINE. [Suspect]
     Active Substance: CLOZAPINE
     Indication: PARKINSON^S DISEASE
     Dosage: 62.5 MILLIGRAM DAILY;
     Route: 065
  18. CLOZAPINE. [Suspect]
     Active Substance: CLOZAPINE
     Route: 065
  19. FLUDROCORTISONE ACETATE. [Suspect]
     Active Substance: FLUDROCORTISONE ACETATE
     Indication: PARKINSON^S DISEASE
     Dosage: .1 MILLIGRAM DAILY;
     Route: 065
  20. NABILONE [Suspect]
     Active Substance: NABILONE
     Indication: PRODUCT USED FOR UNKNOWN INDICATION
     Route: 048
  21. NABILONE [Suspect]
     Active Substance: NABILONE
     Route: 065
  22. NABILONE [Suspect]
     Active Substance: NABILONE
     Route: 065
  23. ENTACAPONE. [Suspect]
     Active Substance: ENTACAPONE
     Indication: PARKINSON^S DISEASE
     Dosage: 1000 MILLIGRAM DAILY;
     Route: 065
  24. ENTACAPONE. [Suspect]
     Active Substance: ENTACAPONE
     Route: 065
  25. ENTACAPONE. [Suspect]
     Active Substance: ENTACAPONE
     Dosage: 1000 MILLIGRAM DAILY;
     Route: 065
  26. LEVODOPA?CARBIDOPA [Suspect]
     Active Substance: CARBIDOPA\LEVODOPA
     Indication: PRODUCT USED FOR UNKNOWN INDICATION
     Route: 065
  27. LEVODOPA?CARBIDOPA [Suspect]
     Active Substance: CARBIDOPA\LEVODOPA
     Route: 065
  28. AMANTADINE HYDROCHLORIDE. [Suspect]
     Active Substance: AMANTADINE HYDROCHLORIDE
     Dosage: 300 MILLIGRAM DAILY;
     Route: 065
  29. FLUDROCORTISONE ACETATE. [Suspect]
     Active Substance: FLUDROCORTISONE ACETATE
     Dosage: .1 MILLIGRAM DAILY;
     Route: 065
  30. NABILONE [Suspect]
     Active Substance: NABILONE
     Route: 065
  31. PRAMIPEXOLE. [Suspect]
     Active Substance: PRAMIPEXOLE
     Indication: PARKINSON^S DISEASE
     Dosage: 4.5 MILLIGRAM DAILY;
     Route: 065
  32. FLUDROCORTISONE ACETATE. [Suspect]
     Active Substance: FLUDROCORTISONE ACETATE
     Indication: PRODUCT USED FOR UNKNOWN INDICATION
     Dosage: .1 MILLIGRAM DAILY;
     Route: 065
  33. PRAMIPEXOLE. [Suspect]
     Active Substance: PRAMIPEXOLE
     Dosage: 12.5 MILLIGRAM DAILY;
     Route: 065
  34. AMANTADINE HYDROCHLORIDE. [Suspect]
     Active Substance: AMANTADINE HYDROCHLORIDE
     Indication: PARKINSON^S DISEASE
     Dosage: 300 MILLIGRAM DAILY;
     Route: 065
  35. CLOZAPINE. [Suspect]
     Active Substance: CLOZAPINE
     Dosage: 37.5 MILLIGRAM DAILY;
     Route: 065
  36. NABILONE [Suspect]
     Active Substance: NABILONE
     Indication: PARKINSON^S DISEASE
     Route: 065
  37. ENTACAPONE. [Suspect]
     Active Substance: ENTACAPONE
     Route: 065
  38. QUETIAPINE FUMARATE. [Suspect]
     Active Substance: QUETIAPINE FUMARATE
     Dosage: 12.5 MILLIGRAM DAILY;
     Route: 048
  39. AMANTADINE HYDROCHLORIDE. [Suspect]
     Active Substance: AMANTADINE HYDROCHLORIDE
     Indication: PSYCHOTIC DISORDER
     Dosage: 300 MILLIGRAM DAILY;
     Route: 065
  40. AMANTADINE HYDROCHLORIDE. [Suspect]
     Active Substance: AMANTADINE HYDROCHLORIDE
     Dosage: 300 MILLIGRAM DAILY;
     Route: 065
  41. CLOZAPINE. [Suspect]
     Active Substance: CLOZAPINE
     Dosage: 37.5 MILLIGRAM DAILY;
     Route: 065
  42. LEVODOPA?CARBIDOPA [Suspect]
     Active Substance: CARBIDOPA\LEVODOPA
     Route: 065
  43. LEVODOPA?CARBIDOPA [Suspect]
     Active Substance: CARBIDOPA\LEVODOPA
     Dosage: 1 DOSAGE FORMS DAILY;
     Route: 065
  44. PRAMIPEXOLE. [Suspect]
     Active Substance: PRAMIPEXOLE
     Dosage: 12.5 MILLIGRAM DAILY;
     Route: 065
  45. PRAMIPEXOLE. [Suspect]
     Active Substance: PRAMIPEXOLE
     Dosage: 4.5 MILLIGRAM DAILY;
     Route: 065
  46. PRAMIPEXOLE. [Suspect]
     Active Substance: PRAMIPEXOLE
     Dosage: 7.5 MILLIGRAM DAILY;
     Route: 065
  47. PRAMIPEXOLE. [Suspect]
     Active Substance: PRAMIPEXOLE
     Dosage: 1.5 MILLIGRAM DAILY;
     Route: 065
  48. AMANTADINE HYDROCHLORIDE. [Suspect]
     Active Substance: AMANTADINE HYDROCHLORIDE
     Indication: PRODUCT USED FOR UNKNOWN INDICATION
     Dosage: 300 MILLIGRAM DAILY;
     Route: 065
  49. AMANTADINE HYDROCHLORIDE. [Suspect]
     Active Substance: AMANTADINE HYDROCHLORIDE
     Dosage: 300 MILLIGRAM DAILY;
     Route: 065
  50. CLOZAPINE. [Suspect]
     Active Substance: CLOZAPINE
     Indication: PSYCHOTIC DISORDER
     Dosage: 62.5 MILLIGRAM DAILY;
     Route: 065
  51. CLOZAPINE. [Suspect]
     Active Substance: CLOZAPINE
     Route: 065

REACTIONS (8)
  - Dyskinesia [Unknown]
  - Therapeutic product effect incomplete [Unknown]
  - Dystonia [Unknown]
  - Parkinson^s disease psychosis [Unknown]
  - Acute psychosis [Unknown]
  - Orthostatic hypotension [Unknown]
  - Therapeutic response shortened [Unknown]
  - Psychotic disorder [Unknown]
